FAERS Safety Report 8141016 (Version 3)
Quarter: 2013Q1

REPORT INFORMATION
  Report Type: Report from Study
  Country: US (occurrence: US)
  Receive Date: 20110918
  Receipt Date: 20130122
  Transmission Date: 20140127
  Serious: Yes (Other)
  Sender: FDA-Public Use
  Company Number: US-BRISTOL-MYERS SQUIBB COMPANY-16057846

PATIENT
  Age: 71 Year
  Sex: Female
  Weight: 92.7 kg

DRUGS (1)
  1. IPILIMUMAB [Suspect]
     Indication: MALIGNANT MELANOMA
     Dosage: LAST ADMIN: 6JUN11.
     Route: 042
     Dates: start: 20110425

REACTIONS (1)
  - Lipase increased [Recovering/Resolving]
